FAERS Safety Report 23733017 (Version 9)
Quarter: 2024Q3

REPORT INFORMATION
  Report Type: Spontaneous
  Country: US (occurrence: US)
  Receive Date: 20240411
  Receipt Date: 20240919
  Transmission Date: 20241016
  Serious: Yes (Other)
  Sender: CALLIDITAS THERAPEUTICS
  Company Number: US-Calliditas-2024CAL00559

PATIENT
  Age: 27 Year
  Sex: Female
  Weight: 102 kg

DRUGS (9)
  1. TARPEYO [Suspect]
     Active Substance: BUDESONIDE
     Indication: IgA nephropathy
     Dosage: 16MG (4MG CAPSULES) ONCE DAILY
     Route: 048
     Dates: start: 20240315
  2. ASCORBIC ACID [Concomitant]
     Active Substance: ASCORBIC ACID
  3. CHLORTHALIDONE [Concomitant]
     Active Substance: CHLORTHALIDONE
  4. VITAMIN D3 [Concomitant]
     Active Substance: CHOLECALCIFEROL
  5. CLEOCIN T [Concomitant]
     Active Substance: CLINDAMYCIN PHOSPHATE
  6. FARXIGA [Concomitant]
     Active Substance: DAPAGLIFLOZIN PROPANEDIOL
  7. KLOR-CON M20 [Concomitant]
     Active Substance: POTASSIUM CHLORIDE
     Dosage: 20MEQ SUDAFED 30MG
  8. AVAPRO [Concomitant]
     Active Substance: IRBESARTAN
  9. PSEUDOEPHEDRINE [Concomitant]
     Active Substance: PSEUDOEPHEDRINE

REACTIONS (12)
  - Influenza [Not Recovered/Not Resolved]
  - Product residue present [Recovered/Resolved]
  - Dry skin [Not Recovered/Not Resolved]
  - Abdominal pain upper [Not Recovered/Not Resolved]
  - Abdominal distension [Unknown]
  - Nausea [Unknown]
  - Dizziness [Unknown]
  - Chills [Unknown]
  - Hunger [Unknown]
  - Blood cholesterol increased [Unknown]
  - Gallbladder hypofunction [Unknown]
  - Product dose omission issue [Unknown]

NARRATIVE: CASE EVENT DATE: 20240401
